FAERS Safety Report 7207672-7 (Version None)
Quarter: 2011Q1

REPORT INFORMATION
  Report Type: 
  Country: None (occurrence: None)
  Receive Date: 20110103
  Receipt Date: 20101222
  Transmission Date: 20110831
  Serious: Yes (Other)
  Sender: FDA-Public Use
  Company Number: US-PFIZER INC-2010178055

PATIENT

DRUGS (1)
  1. EFFEXOR [Suspect]
     Dosage: UNK

REACTIONS (4)
  - TIC [None]
  - DRUG WITHDRAWAL SYNDROME [None]
  - NERVOUSNESS [None]
  - ANXIETY [None]
